FAERS Safety Report 15518068 (Version 1)
Quarter: 2018Q4

REPORT INFORMATION
  Report Type: Spontaneous
  Country: US (occurrence: US)
  Receive Date: 20181017
  Receipt Date: 20181017
  Transmission Date: 20190205
  Serious: No
  Sender: FDA-Public Use
  Company Number: US-PFIZER INC-2018413561

PATIENT
  Age: 65 Year
  Sex: Female
  Weight: 112.94 kg

DRUGS (24)
  1. LASIX [Concomitant]
     Active Substance: FUROSEMIDE
     Indication: CARDIAC ARREST
     Dosage: 40 MG, 1X/DAY
  2. LOSARTAN POTASSIUM. [Concomitant]
     Active Substance: LOSARTAN POTASSIUM
     Indication: BLOOD POTASSIUM DECREASED
     Dosage: 100 MG, 1X/DAY
     Route: 048
     Dates: start: 2018
  3. METOPROLOL SUCCINATE. [Concomitant]
     Active Substance: METOPROLOL SUCCINATE
     Dosage: 25 MG, 1X/DAY
  4. OXYGEN. [Concomitant]
     Active Substance: OXYGEN
     Dosage: 2 L, AS NEEDED (TAKES WITH ACTIVITY AND SLEEPING)
  5. CYMBALTA [Concomitant]
     Active Substance: DULOXETINE HYDROCHLORIDE
     Indication: DEPRESSION
  6. FLORASTOR [SACCHAROMYCES BOULARDII] [Concomitant]
     Indication: GASTRIC DISORDER
     Dosage: 250 MG, 1X/DAY
     Route: 048
  7. CYMBALTA [Concomitant]
     Active Substance: DULOXETINE HYDROCHLORIDE
     Indication: PAIN
     Dosage: 90 MG, 3X/DAY
     Route: 048
  8. ZETIA [Concomitant]
     Active Substance: EZETIMIBE
     Dosage: 10 MG, 1X/DAY
     Route: 048
  9. FERROUS SULFATE. [Concomitant]
     Active Substance: FERROUS SULFATE
     Indication: BLOOD IRON DECREASED
     Dosage: 325 MG, 2X/DAY
     Route: 048
  10. SYNTHROID [Concomitant]
     Active Substance: LEVOTHYROXINE SODIUM
     Indication: THYROID DISORDER
     Dosage: 200 UG, DAILY
     Route: 048
  11. METFORMIN [Concomitant]
     Active Substance: METFORMIN HYDROCHLORIDE
     Indication: DIABETES MELLITUS
     Dosage: 1000 MG, 2X/DAY
     Route: 048
  12. LYRICA [Suspect]
     Active Substance: PREGABALIN
     Indication: FIBROMYALGIA
     Dosage: 200 MG, 3X/DAY
  13. BENZONATATE. [Concomitant]
     Active Substance: BENZONATATE
     Indication: COUGH
     Dosage: 100 MG, AS NEEDED
     Route: 048
  14. LYRICA [Suspect]
     Active Substance: PREGABALIN
     Indication: ARTHRALGIA
     Dosage: 200 MG, 2X/DAY
  15. CYMBALTA [Concomitant]
     Active Substance: DULOXETINE HYDROCHLORIDE
     Indication: SLEEP DISORDER
  16. TOUJEO [Concomitant]
     Active Substance: INSULIN GLARGINE
     Indication: DIABETES MELLITUS
     Dosage: 65 IU, 2X/DAY
  17. CLARITIN [Concomitant]
     Active Substance: LORATADINE
     Indication: HYPERSENSITIVITY
     Dosage: 10 MG, AS NEEDED
     Route: 048
  18. OMEPRAZOLE. [Concomitant]
     Active Substance: OMEPRAZOLE
     Indication: GASTRIC DISORDER
     Dosage: 40 MG, 1X/DAY
     Route: 048
  19. PROAIR HFA [Concomitant]
     Active Substance: ALBUTEROL SULFATE
     Dosage: UNK
     Route: 055
  20. ASPIRIN. [Concomitant]
     Active Substance: ASPIRIN
     Indication: CARDIAC FAILURE
     Dosage: 81 MG, 1X/DAY
     Route: 048
  21. HUMALOG [Concomitant]
     Active Substance: INSULIN LISPRO
     Indication: DIABETES MELLITUS
     Dosage: 25 IU, 3X/DAY
     Route: 058
  22. ALBUTEROL SULFATE. [Concomitant]
     Active Substance: ALBUTEROL SULFATE
     Indication: PULMONARY HYPERTENSION
     Dosage: UNK UNK, AS NEEDED (2 PUFFS EVERY 6 HOURS)
     Route: 055
  23. JARDIANCE [Concomitant]
     Active Substance: EMPAGLIFLOZIN
     Indication: DIABETES MELLITUS
     Dosage: 25 MG, 1X/DAY (AT BEDTIME)
     Route: 048
  24. VITAMIN D [COLECALCIFEROL] [Concomitant]
     Indication: VITAMIN D DEFICIENCY
     Dosage: 1 DF, AS NEEDED
     Route: 048

REACTIONS (4)
  - Arthralgia [Unknown]
  - Prescription drug used without a prescription [Unknown]
  - Intentional product use issue [Unknown]
  - Overdose [Unknown]
